FAERS Safety Report 10120995 (Version 3)
Quarter: 2014Q2

REPORT INFORMATION
  Report Type: Spontaneous
  Country: JP (occurrence: JP)
  Receive Date: 20140425
  Receipt Date: 20140508
  Transmission Date: 20141212
  Serious: Yes (Other)
  Sender: FDA-Public Use
  Company Number: JP-GLAXOSMITHKLINE-B0987249A

PATIENT
  Age: 78 Year
  Sex: Male

DRUGS (5)
  1. ZOVIRAX [Suspect]
     Indication: HERPES ZOSTER
     Route: 031
     Dates: start: 201104, end: 201104
  2. ZOVIRAX [Concomitant]
     Indication: HERPES ZOSTER
     Dosage: 165MG PER DAY
     Route: 042
     Dates: start: 201104, end: 201104
  3. GLYCEOL [Concomitant]
     Route: 042
     Dates: start: 201404
  4. MIKELAN [Concomitant]
     Route: 031
     Dates: start: 201404
  5. TRUSOPT [Concomitant]
     Route: 031
     Dates: start: 201404

REACTIONS (2)
  - Toxic encephalopathy [Recovering/Resolving]
  - Altered state of consciousness [Recovering/Resolving]
